FAERS Safety Report 5487347-5 (Version None)
Quarter: 2007Q4

REPORT INFORMATION
  Report Type: 
  Country: None (occurrence: None)
  Receive Date: 20071016
  Receipt Date: 20071004
  Transmission Date: 20080405
  Serious: Yes (Other)
  Sender: FDA-Public Use
  Company Number: US-PFIZER INC-2007084596

PATIENT
  Sex: Female
  Weight: 86.363 kg

DRUGS (2)
  1. CHANTIX [Suspect]
     Indication: SMOKING CESSATION THERAPY
     Dates: start: 20070929, end: 20071001
  2. PERCOCET [Concomitant]
     Indication: INTERVERTEBRAL DISC PROTRUSION

REACTIONS (2)
  - BLISTER [None]
  - ORAL PAIN [None]
